FAERS Safety Report 6516754-4 (Version None)
Quarter: 2009Q4

REPORT INFORMATION
  Report Type: 
  Country: None (occurrence: None)
  Receive Date: 20091223
  Receipt Date: 20091215
  Transmission Date: 20100525
  Serious: Yes (Hospitalization)
  Sender: FDA-Public Use
  Company Number: US-JNJFOC-20091205413

PATIENT
  Sex: Female
  Weight: 55 kg

DRUGS (13)
  1. INFLIXIMAB [Suspect]
     Indication: INFLAMMATORY BOWEL DISEASE
     Route: 042
  2. CIMZIA [Concomitant]
     Indication: INFLAMMATORY BOWEL DISEASE
  3. LIALDA [Concomitant]
  4. PREDNISONE [Concomitant]
  5. ACIPHEX [Concomitant]
  6. METHOTREXATE [Concomitant]
  7. FOLIC ACID [Concomitant]
  8. CALTRATE [Concomitant]
  9. 5-ASA [Concomitant]
  10. ANTIBIOTICS [Concomitant]
     Indication: INFLAMMATORY BOWEL DISEASE
  11. PROTON PUMP INHIBITOR [Concomitant]
  12. VITAMIN [Concomitant]
  13. ANTACID TAB [Concomitant]

REACTIONS (1)
  - CROHN'S DISEASE [None]
